FAERS Safety Report 7725981-X (Version None)
Quarter: 2011Q3

REPORT INFORMATION
  Report Type: 
  Country: None (occurrence: None)
  Receive Date: 20110902
  Receipt Date: 20110830
  Transmission Date: 20111222
  Serious: Yes (Other)
  Sender: FDA-Public Use
  Company Number: US-PFIZER INC-2009314950

PATIENT
  Sex: Female
  Weight: 95.238 kg

DRUGS (6)
  1. LISINOPRIL [Concomitant]
     Indication: BLOOD PRESSURE
     Dosage: 10 MG, 1X/DAY
  2. CHANTIX [Suspect]
     Indication: SMOKING CESSATION THERAPY
     Dosage: 0.5 MG, 1X/DAY
     Route: 048
     Dates: start: 20090921, end: 20090930
  3. XANAX [Concomitant]
     Indication: PANIC ATTACK
     Dosage: 1 MG, 3X/DAY
  4. PERCOCET [Concomitant]
     Indication: PAIN
     Dosage: 10/500 MG, 4X/DAY
  5. REQUIP [Concomitant]
     Indication: RESTLESS LEGS SYNDROME
     Dosage: 1 MG, 1X/DAY
  6. ZANAFLEX [Concomitant]
     Dosage: UNK

REACTIONS (4)
  - HALLUCINATION [None]
  - DEPRESSED MOOD [None]
  - FEELING ABNORMAL [None]
  - DISSOCIATION [None]
